FAERS Safety Report 6404771-4 (Version None)
Quarter: 2009Q4

REPORT INFORMATION
  Report Type: 
  Country: None (occurrence: None)
  Receive Date: 20091016
  Receipt Date: 20091001
  Transmission Date: 20100525
  Serious: Yes (Other)
  Sender: FDA-Public Use
  Company Number: BR-PFIZER INC-2009276922

PATIENT

DRUGS (3)
  1. VIAGRA [Suspect]
     Indication: ERECTILE DYSFUNCTION
     Dosage: 50 MG, AS NEEDED
     Route: 048
     Dates: start: 20010101
  2. ATENOLOL [Concomitant]
     Indication: HYPERTENSION
     Dosage: 50 MG, 1X/DAY
     Route: 048
  3. VASOPRIL /BRA/ [Concomitant]
     Indication: HYPERTENSION
     Dosage: 10 MG, EVERY TWELVE HOURS
     Route: 048

REACTIONS (4)
  - DRUG INEFFECTIVE [None]
  - INFARCTION [None]
  - LISTLESS [None]
  - SYNCOPE [None]
